FAERS Safety Report 11319094 (Version 1)
Quarter: 2015Q3

REPORT INFORMATION
  Report Type: Spontaneous
  Country: US (occurrence: None)
  Receive Date: 20150728
  Receipt Date: 20150728
  Transmission Date: 20151125
  Serious: No
  Sender: FDA-Public Use
  Company Number: None

PATIENT
  Age: 11 Month
  Sex: Female

DRUGS (1)
  1. CALMING DIAPER RASH [Suspect]
     Active Substance: ZINC OXIDE

REACTIONS (3)
  - Application site pain [None]
  - Rash [None]
  - Application site burn [None]

NARRATIVE: CASE EVENT DATE: 20150708
